FAERS Safety Report 24033516 (Version 4)
Quarter: 2024Q3

REPORT INFORMATION
  Report Type: Spontaneous
  Country: US (occurrence: US)
  Receive Date: 20240701
  Receipt Date: 20240919
  Transmission Date: 20241016
  Serious: No
  Sender: BAUSCH AND LOMB
  Company Number: US-BAUSCHBL-2024BNL029000

PATIENT
  Age: 97 Year
  Sex: Female
  Weight: 56.69 kg

DRUGS (1)
  1. XIIDRA [Suspect]
     Active Substance: LIFITEGRAST
     Indication: Dry eye
     Dosage: USED THE PRODUCT FOR ABOUT 2 WEEKS
     Route: 047
     Dates: start: 20240601

REACTIONS (5)
  - Burning sensation [Not Recovered/Not Resolved]
  - Vision blurred [Recovered/Resolved]
  - Eye discharge [Not Recovered/Not Resolved]
  - Product physical consistency issue [Unknown]
  - Poor quality product administered [Unknown]

NARRATIVE: CASE EVENT DATE: 20240101
